FAERS Safety Report 8569047 (Version 4)
Quarter: 2013Q4

REPORT INFORMATION
  Report Type: Report from Study
  Country: BR (occurrence: BR)
  Receive Date: 20120518
  Receipt Date: 20131004
  Transmission Date: 20140711
  Serious: Yes (Other)
  Sender: FDA-Public Use
  Company Number: BR-SHIRE-SPV1-2012-00458

PATIENT
  Age: 9 Year
  Sex: Male

DRUGS (3)
  1. ELAPRASE [Suspect]
     Indication: MUCOPOLYSACCHARIDOSIS II
     Dosage: 0.5 MG/KG, 1X/WEEK
     Route: 041
     Dates: start: 20110512
  2. PROMETHAZINE [Concomitant]
     Indication: PREMEDICATION
     Dosage: 0.5 MG, UNKNOWN
     Route: 042
  3. DIPHENHYDRAMINE [Concomitant]
     Indication: PREMEDICATION
     Dosage: 0.24 ML, UNKNOWN
     Route: 042

REACTIONS (5)
  - Nausea [Recovered/Resolved]
  - Eyelid oedema [Recovered/Resolved]
  - Urticaria [Recovered/Resolved]
  - Rash [Recovered/Resolved]
  - Infusion related reaction [Recovered/Resolved]
